FAERS Safety Report 19386370 (Version 7)
Quarter: 2022Q2

REPORT INFORMATION
  Report Type: Report from Study
  Country: US (occurrence: US)
  Receive Date: 20210607
  Receipt Date: 20220401
  Transmission Date: 20220721
  Serious: No
  Sender: FDA-Public Use
  Company Number: NVSC2021US128257

PATIENT
  Age: 54 Year
  Sex: Female

DRUGS (2)
  1. COSENTYX [Suspect]
     Active Substance: SECUKINUMAB
     Indication: Psoriatic arthropathy
     Dosage: UNK UNK, QW
     Route: 058
  2. COSENTYX [Suspect]
     Active Substance: SECUKINUMAB
     Dosage: 150 MG, UNKNOWN
     Route: 030

REACTIONS (12)
  - Arthralgia [Unknown]
  - Stomatitis [Recovered/Resolved]
  - Pain in extremity [Recovering/Resolving]
  - Arthritis [Unknown]
  - Influenza like illness [Unknown]
  - Headache [Unknown]
  - Pain [Unknown]
  - Oropharyngeal pain [Unknown]
  - Pyrexia [Unknown]
  - Injection site pain [Recovered/Resolved]
  - Product dose omission issue [Unknown]
  - Incorrect route of product administration [Unknown]

NARRATIVE: CASE EVENT DATE: 20210731
